FAERS Safety Report 10388740 (Version 1)
Quarter: 2014Q1

REPORT INFORMATION
  Report Type: Spontaneous
  Country: US (occurrence: None)
  Receive Date: 20140306
  Receipt Date: 20140306
  Transmission Date: 20141002
  Serious: Yes (Other)
  Sender: FDA-Public Use
  Company Number: 163-21880-13123630

PATIENT
  Age: 80 Year
  Sex: Female

DRUGS (11)
  1. REVLIMID (LENALIDOMIDE) (5 MILLIGRAM, CAPSULES) [Suspect]
     Indication: PLASMA CELL MYELOMA
     Route: 048
     Dates: start: 201004
  2. DEXAMETHASONE [Concomitant]
  3. VELCADE (BORTEZOMIB) [Concomitant]
  4. FUROSEMIDE [Concomitant]
  5. LYRICA (PREGABALIN) [Concomitant]
  6. NORTRIPTYLINE HCL [Concomitant]
  7. FENTANYL (POULICE OR PATCH) [Concomitant]
  8. SYMBICORT (SYMBICORT TURBHALER ^DRACO^) (POULICE OR PATCH) [Concomitant]
  9. ALPRAZOLAM [Concomitant]
  10. LEXAPRO (ESCITALOPRAM OXALATE) [Concomitant]
  11. OXYCODONE HCL [Concomitant]

REACTIONS (1)
  - Thrombosis [None]
